FAERS Safety Report 6845545-X (Version None)
Quarter: 2010Q3

REPORT INFORMATION
  Report Type: 
  Country: None (occurrence: None)
  Receive Date: 20100715
  Receipt Date: 20100702
  Transmission Date: 20110219
  Serious: Yes (Hospitalization, Other)
  Sender: FDA-Public Use
  Company Number: PHHY2010US27251

PATIENT
  Sex: Male
  Weight: 75.3 kg

DRUGS (1)
  1. EXJADE [Suspect]
     Indication: MYELODYSPLASTIC SYNDROME
     Dosage: 1500 MG, QD
     Route: 048

REACTIONS (5)
  - BRAIN OPERATION [None]
  - DISCOMFORT [None]
  - FALL [None]
  - GASTROINTESTINAL TUBE INSERTION [None]
  - HYPOPHAGIA [None]
